FAERS Safety Report 9019896 (Version 1)
Quarter: 2013Q1

REPORT INFORMATION
  Report Type: Spontaneous
  Country: GB (occurrence: GB)
  Receive Date: 20130118
  Receipt Date: 20130118
  Transmission Date: 20140127
  Serious: Yes (Congenital Anomaly)
  Sender: FDA-Public Use
  Company Number: GB-JNJFOC-20130108998

PATIENT
  Sex: 0

DRUGS (2)
  1. TOPIRAMATE [Suspect]
     Indication: FOETAL EXPOSURE DURING PREGNANCY
     Route: 064
  2. ANTIEPILEPTIC MEDICATIONS [Suspect]
     Indication: FOETAL EXPOSURE DURING PREGNANCY
     Route: 064

REACTIONS (4)
  - Congenital anomaly [Unknown]
  - Cleft lip and palate [Unknown]
  - Hypospadias [Unknown]
  - Maternal drugs affecting foetus [None]
